FAERS Safety Report 7386283-7 (Version None)
Quarter: 2011Q1

REPORT INFORMATION
  Report Type: 
  Country: None (occurrence: None)
  Receive Date: 20110331
  Receipt Date: 20110316
  Transmission Date: 20110831
  Serious: No
  Sender: FDA-Public Use
  Company Number: PHHY2011US22268

PATIENT
  Age: 52 Year
  Sex: Female
  Weight: 60.3 kg

DRUGS (8)
  1. TASIGNA [Suspect]
     Indication: CHRONIC MYELOID LEUKAEMIA
     Dosage: 200 MG, BID
     Route: 048
     Dates: start: 20090601
  2. CELLCEPT [Concomitant]
  3. MAGNESIUM OXIDE [Concomitant]
  4. BACTRIM DS [Concomitant]
  5. VFEND [Concomitant]
     Dosage: UNK
  6. ACYCLOVIR [Concomitant]
  7. CYCLOSPORINE [Concomitant]
  8. LACTOBACILLUS [Concomitant]

REACTIONS (1)
  - DIARRHOEA [None]
